FAERS Safety Report 20531305 (Version 2)
Quarter: 2022Q1

REPORT INFORMATION
  Report Type: Report from Study
  Country: US (occurrence: US)
  Receive Date: 20220301
  Receipt Date: 20220310
  Transmission Date: 20220424
  Serious: Yes (Hospitalization, Other)
  Sender: FDA-Public Use
  Company Number: US-SAMOHPHARM-2022000707

PATIENT

DRUGS (2)
  1. CARBAGLU [Suspect]
     Active Substance: CARGLUMIC ACID
     Indication: Hyperglycinaemia
     Dosage: 600 MILLIGRAM, TID
     Dates: start: 202202
  2. CARBAGLU [Suspect]
     Active Substance: CARGLUMIC ACID
     Indication: Carbamoyl phosphate synthetase deficiency

REACTIONS (4)
  - Vomiting [Not Recovered/Not Resolved]
  - Liver disorder [Unknown]
  - Drug intolerance [Unknown]
  - Off label use [Recovered/Resolved]

NARRATIVE: CASE EVENT DATE: 20220201
